FAERS Safety Report 15665251 (Version 2)
Quarter: 2019Q1

REPORT INFORMATION
  Report Type: Report from Study
  Country: CA (occurrence: CA)
  Receive Date: 20181128
  Receipt Date: 20190125
  Transmission Date: 20190417
  Serious: Yes (Death, Hospitalization)
  Sender: FDA-Public Use
  Company Number: CA-TAIHO ONCOLOGY  INC-EU-2018-02039

PATIENT
  Age: 66 Year
  Sex: Male
  Weight: 88.3 kg

DRUGS (15)
  1. GUAIFENESIN. [Concomitant]
     Active Substance: GUAIFENESIN
     Route: 048
     Dates: start: 20181113
  2. LONSURF [Suspect]
     Active Substance: TIPIRACIL HYDROCHLORIDE\TRIFLURIDINE
     Dosage: CYCLE 3
     Route: 048
     Dates: start: 20181101
  3. HYDROCODONE [Concomitant]
     Active Substance: HYDROCODONE
     Route: 048
  4. LONSURF [Suspect]
     Active Substance: TIPIRACIL HYDROCHLORIDE\TRIFLURIDINE
     Indication: COLORECTAL CANCER METASTATIC
     Dosage: CYCLES 1-2
     Route: 048
     Dates: start: 20180906, end: 20181031
  5. DOMPERIDONE [Concomitant]
     Active Substance: DOMPERIDONE
     Route: 048
     Dates: end: 20180830
  6. DEXAMETHASONE. [Concomitant]
     Active Substance: DEXAMETHASONE
     Route: 048
     Dates: start: 20180904
  7. FLUTICASONE. [Concomitant]
     Active Substance: FLUTICASONE
     Dosage: 1 PUFF = 250 MCG
     Dates: start: 20180904
  8. PANTOPRAZOLE [Concomitant]
     Active Substance: PANTOPRAZOLE
     Route: 048
     Dates: start: 20180904
  9. MEGESTROL [Concomitant]
     Active Substance: MEGESTROL
     Route: 048
     Dates: start: 20181002
  10. LORAZEPAM. [Concomitant]
     Active Substance: LORAZEPAM
     Route: 048
  11. METFORMIN [Concomitant]
     Active Substance: METFORMIN HYDROCHLORIDE
     Route: 048
     Dates: start: 20180904
  12. MORPHINE [Concomitant]
     Active Substance: MORPHINE
     Route: 048
  13. SALBUTAMOL [Concomitant]
     Active Substance: ALBUTEROL
  14. DULOXETINE. [Concomitant]
     Active Substance: DULOXETINE
     Route: 048
     Dates: start: 20180904
  15. SIMVASTATIN. [Concomitant]
     Active Substance: SIMVASTATIN

REACTIONS (17)
  - Hypoxia [Not Recovered/Not Resolved]
  - Dyspnoea [Not Recovered/Not Resolved]
  - Pain [Unknown]
  - Hypotension [Unknown]
  - Tachycardia [Unknown]
  - Generalised anxiety disorder [Not Recovered/Not Resolved]
  - Depressed level of consciousness [Unknown]
  - Pneumonia [Fatal]
  - Atrial fibrillation [Unknown]
  - Lethargy [Not Recovered/Not Resolved]
  - Respiratory distress [Not Recovered/Not Resolved]
  - Decreased appetite [Unknown]
  - Blood lactic acid increased [Unknown]
  - Asthenia [Unknown]
  - Disease progression [Fatal]
  - Confusional state [Unknown]
  - Sepsis [Not Recovered/Not Resolved]

NARRATIVE: CASE EVENT DATE: 2018
